FAERS Safety Report 16315714 (Version 1)
Quarter: 2019Q2

REPORT INFORMATION
  Report Type: Spontaneous
  Country: CA (occurrence: CA)
  Receive Date: 20190515
  Receipt Date: 20190515
  Transmission Date: 20190711
  Serious: Yes (Other)
  Sender: FDA-Public Use
  Company Number: CA-ALLERGAN-1649985

PATIENT
  Sex: Female

DRUGS (2)
  1. RISEDRONATE SODIUM UNK [Suspect]
     Active Substance: RISEDRONATE SODIUM
     Dosage: 35 MG, SINGLE
     Route: 048
     Dates: start: 2007
  2. RISEDRONATE SODIUM UNK [Suspect]
     Active Substance: RISEDRONATE SODIUM
     Indication: OSTEOPOROSIS
     Dosage: 150 MG, Q MONTH
     Route: 048
     Dates: start: 2009

REACTIONS (2)
  - Scleritis [Recovered/Resolved]
  - Scleritis [Recovered/Resolved]

NARRATIVE: CASE EVENT DATE: 2007
